FAERS Safety Report 24374911 (Version 1)
Quarter: 2024Q3

REPORT INFORMATION
  Report Type: Spontaneous
  Country: CN (occurrence: CN)
  Receive Date: 20240927
  Receipt Date: 20240927
  Transmission Date: 20241016
  Serious: Yes (Other)
  Sender: MERCK
  Company Number: CN-009507513-2409CHN007623

PATIENT
  Age: 93 Year
  Sex: Male
  Weight: 62 kg

DRUGS (1)
  1. INVANZ [Suspect]
     Active Substance: ERTAPENEM SODIUM
     Indication: Pneumonia
     Dosage: 1 GRAM, QD
     Route: 041
     Dates: start: 20240906, end: 20240909

REACTIONS (8)
  - Dysarthria [Recovering/Resolving]
  - Somnolence [Recovering/Resolving]
  - Decreased appetite [Unknown]
  - Drug effect less than expected [Unknown]
  - Subdural effusion [Unknown]
  - Psychiatric symptom [Recovering/Resolving]
  - Blood test abnormal [Unknown]
  - C-reactive protein increased [Unknown]

NARRATIVE: CASE EVENT DATE: 20240907
